FAERS Safety Report 24218210 (Version 3)
Quarter: 2025Q2

REPORT INFORMATION
  Report Type: Spontaneous
  Country: US (occurrence: US)
  Receive Date: 20240816
  Receipt Date: 20250423
  Transmission Date: 20250717
  Serious: Yes (Other)
  Sender: PFIZER
  Company Number: US-PFIZER INC-202400237454

PATIENT
  Age: 30 Year
  Sex: Male

DRUGS (1)
  1. VELSIPITY [Suspect]
     Active Substance: ETRASIMOD ARGININE

REACTIONS (8)
  - Colitis ulcerative [Unknown]
  - Drug ineffective [Unknown]
  - Product administration error [Unknown]
  - Product storage error [Unknown]
  - Lymphadenopathy [Recovered/Resolved]
  - Headache [Unknown]
  - Fatigue [Unknown]
  - Attention deficit hyperactivity disorder [Unknown]
